FAERS Safety Report 4736126-2 (Version None)
Quarter: 2005Q3

REPORT INFORMATION
  Report Type: 
  Country: None (occurrence: None)
  Receive Date: 20050805
  Receipt Date: 20050518
  Transmission Date: 20060218
  Serious: Yes (Hospitalization, Other)
  Sender: FDA-Public Use
  Company Number: US-MERCK-0505USA02269

PATIENT
  Age: 78 Year
  Sex: Female
  Weight: 66 kg

DRUGS (7)
  1. VIOXX [Suspect]
     Indication: ARTHRITIS
     Route: 048
     Dates: start: 20010301, end: 20040901
  2. QUININE SULFATE [Concomitant]
     Route: 065
  3. LABELOL [Concomitant]
     Route: 065
     Dates: start: 20001212
  4. TARKA [Concomitant]
     Route: 065
  5. CLONIDINE [Concomitant]
     Route: 065
  6. UNIRETIC [Concomitant]
     Indication: HYPERTENSION
     Route: 065
     Dates: start: 19700101
  7. ACTOS [Concomitant]
     Route: 065

REACTIONS (8)
  - CARDIAC DISORDER [None]
  - CARDIAC FAILURE [None]
  - CHEST PAIN [None]
  - DIABETES MELLITUS [None]
  - OEDEMA PERIPHERAL [None]
  - PAIN IN EXTREMITY [None]
  - PULMONARY EMBOLISM [None]
  - THROMBOSIS [None]
